FAERS Safety Report 8792471 (Version 1)
Quarter: 2012Q4

REPORT INFORMATION
  Report Type: 
  Country: US (occurrence: US)
  Receive Date: 20120918
  Receipt Date: 20120918
  Transmission Date: 20130627
  Serious: No
  Sender: FDA-Public Use
  Company Number: US-BAYER-2012-096666

PATIENT
  Age: 40 Year
  Sex: Male

DRUGS (7)
  1. NIFEDIPINE [Suspect]
     Indication: HYPERTENSION
  2. HYDROCHLOROTHIAZIDE [Concomitant]
  3. GEMFIBROZIL [Concomitant]
  4. NAPROXEN [Concomitant]
  5. CYCLOBENZAPRINE [Concomitant]
  6. OXYCODONE [Concomitant]
  7. CAFFEINE [Concomitant]

REACTIONS (1)
  - Dysuria [Recovered/Resolved]
